FAERS Safety Report 16774709 (Version 2)
Quarter: 2019Q3

REPORT INFORMATION
  Report Type: Report from Study
  Country: None (occurrence: US)
  Receive Date: 20190905
  Receipt Date: 20190923
  Transmission Date: 20191005
  Serious: Yes (Hospitalization, Other)
  Sender: FDA-Public Use
  Company Number: US-ABBVIE-19K-163-2908853-00

PATIENT
  Age: 79 Year
  Sex: Male
  Weight: 57.66 kg

DRUGS (7)
  1. FUROSEMIDE. [Concomitant]
     Active Substance: FUROSEMIDE
     Indication: NAUSEA
  2. EQUIPAX [Concomitant]
     Indication: SLEEP DISORDER THERAPY
  3. VENCLEXTA [Suspect]
     Active Substance: VENETOCLAX
     Route: 048
     Dates: start: 2019
  4. VENCLEXTA [Suspect]
     Active Substance: VENETOCLAX
     Indication: CHRONIC LYMPHOCYTIC LEUKAEMIA
     Route: 048
     Dates: start: 20190812, end: 20190818
  5. IMODIUM [Concomitant]
     Active Substance: LOPERAMIDE HYDROCHLORIDE
     Indication: DIARRHOEA
  6. VENCLEXTA [Suspect]
     Active Substance: VENETOCLAX
     Indication: HEPATIC CANCER
     Route: 048
     Dates: start: 20190819, end: 20190825
  7. VENCLEXTA [Suspect]
     Active Substance: VENETOCLAX
     Route: 048
     Dates: start: 20190827, end: 20190902

REACTIONS (6)
  - Muscle strain [Unknown]
  - Peripheral swelling [Recovering/Resolving]
  - Deafness [Not Recovered/Not Resolved]
  - Metastases to liver [Unknown]
  - Metastases to spleen [Unknown]
  - Pneumonia [Recovered/Resolved]

NARRATIVE: CASE EVENT DATE: 2019
